FAERS Safety Report 11855502 (Version 3)
Quarter: 2016Q1

REPORT INFORMATION
  Report Type: Spontaneous
  Country: US (occurrence: US)
  Receive Date: 20151221
  Receipt Date: 20160321
  Transmission Date: 20160526
  Serious: Yes (Death, Hospitalization)
  Sender: FDA-Public Use
  Company Number: US-PFIZER INC-2015445515

PATIENT
  Age: 82 Year
  Sex: Male

DRUGS (2)
  1. SUTENT [Suspect]
     Active Substance: SUNITINIB MALATE
     Dosage: 37.5 MG, ALTERNATE DAY
     Dates: start: 20151202, end: 20151208
  2. SUTENT [Suspect]
     Active Substance: SUNITINIB MALATE
     Indication: RENAL CELL CARCINOMA
     Dosage: 37.5 MG, DAILY
     Dates: start: 20151125, end: 20151202

REACTIONS (6)
  - Death [Fatal]
  - Dyspnoea [Unknown]
  - Tremor [Unknown]
  - Disease progression [Unknown]
  - Renal cell carcinoma [Unknown]
  - Chest pain [Unknown]

NARRATIVE: CASE EVENT DATE: 20160124
